FAERS Safety Report 11341549 (Version 1)
Quarter: 2015Q3

REPORT INFORMATION
  Report Type: Spontaneous
  Country: IT (occurrence: IT)
  Receive Date: 20150805
  Receipt Date: 20150805
  Transmission Date: 20151125
  Serious: Yes (Death, Other)
  Sender: FDA-Public Use
  Company Number: PHHY2015IT089527

PATIENT
  Age: 64 Year
  Sex: Female

DRUGS (2)
  1. SUNITINIB [Concomitant]
     Active Substance: SUNITINIB
     Indication: CLEAR CELL RENAL CELL CARCINOMA
     Dosage: UNK
     Route: 065
     Dates: start: 200907
  2. ZOLEDRONATE [Suspect]
     Active Substance: ZOLEDRONIC ACID
     Indication: METASTASES TO BONE
     Dosage: UNK
     Route: 042
     Dates: start: 2010

REACTIONS (6)
  - Gingivitis [Recovered/Resolved]
  - Death [Fatal]
  - Osteonecrosis of jaw [Recovered/Resolved]
  - Bone lesion [Recovered/Resolved]
  - Pain in jaw [Recovered/Resolved]
  - Inflammation [Recovered/Resolved]

NARRATIVE: CASE EVENT DATE: 201106
